FAERS Safety Report 4718591-X (Version None)
Quarter: 2005Q3

REPORT INFORMATION
  Report Type: 
  Country: None (occurrence: None)
  Receive Date: 20050720
  Receipt Date: 20050506
  Transmission Date: 20060218
  Serious: Yes (Hospitalization)
  Sender: FDA-Public Use
  Company Number: US-GLAXOSMITHKLINE-A0557531A

PATIENT
  Sex: Female
  Weight: 70.9 kg

DRUGS (1)
  1. FLOLAN [Suspect]
     Route: 042
     Dates: start: 20040101

REACTIONS (3)
  - FLUID RETENTION [None]
  - RECTAL HAEMORRHAGE [None]
  - THROMBOCYTOPENIA [None]
